FAERS Safety Report 5854627-0 (Version None)
Quarter: 2008Q3

REPORT INFORMATION
  Report Type: 
  Country: None (occurrence: None)
  Receive Date: 20080822
  Receipt Date: 20071102
  Transmission Date: 20090109
  Serious: No
  Sender: FDA-Public Use
  Company Number: US-ABBOTT-07P-163-0423751-00

PATIENT
  Sex: Female
  Weight: 88.53 kg

DRUGS (3)
  1. SYNTHROID [Suspect]
     Indication: HYPOTHYROIDISM
     Route: 048
     Dates: start: 20070801
  2. SYNTHROID [Suspect]
     Route: 048
  3. LORAZEPAM [Concomitant]
     Indication: INSOMNIA
     Route: 048

REACTIONS (2)
  - DIARRHOEA [None]
  - EYELID OEDEMA [None]
